FAERS Safety Report 23766009 (Version 2)
Quarter: 2024Q2

REPORT INFORMATION
  Report Type: Report from Study
  Country: BR (occurrence: BR)
  Receive Date: 20240421
  Receipt Date: 20240423
  Transmission Date: 20240716
  Serious: Yes (Hospitalization, Congenital Anomaly)
  Sender: FDA-Public Use
  Company Number: BR-BIOGEN-2024BI01260777

PATIENT
  Age: 0 Year
  Sex: Female

DRUGS (1)
  1. TYSABRI [Suspect]
     Active Substance: NATALIZUMAB
     Indication: Maternal exposure timing unspecified
     Route: 050
     Dates: start: 202207

REACTIONS (7)
  - Spina bifida [Unknown]
  - Congenital cerebellar agenesis [Unknown]
  - Congenital central nervous system anomaly [Unknown]
  - Cleft lip and palate [Unknown]
  - Iris coloboma [Unknown]
  - Retinal coloboma [Unknown]
  - Foetal exposure during pregnancy [Recovered/Resolved]

NARRATIVE: CASE EVENT DATE: 20230301
